FAERS Safety Report 4477447-0 (Version None)
Quarter: 2004Q4

REPORT INFORMATION
  Report Type: 
  Country: None (occurrence: None)
  Receive Date: 20041018
  Receipt Date: 20041008
  Transmission Date: 20050328
  Serious: Yes (Other)
  Sender: FDA-Public Use
  Company Number: PHEH2004US10875

PATIENT
  Age: 47 Year
  Sex: Female

DRUGS (2)
  1. TRILEPTAL [Suspect]
     Indication: CONVULSION
  2. DECADRON [Suspect]

REACTIONS (2)
  - BLOOD GLUCOSE INCREASED [None]
  - BREAST CANCER [None]
